FAERS Safety Report 6528689-1 (Version None)
Quarter: 2010Q1

REPORT INFORMATION
  Report Type: 
  Country: None (occurrence: None)
  Receive Date: 20100106
  Receipt Date: 20091230
  Transmission Date: 20100710
  Serious: Yes (Other)
  Sender: FDA-Public Use
  Company Number: GB-JNJFOC-20091100878

PATIENT
  Age: 7 Year
  Sex: Female

DRUGS (8)
  1. REMICADE [Suspect]
     Route: 042
  2. REMICADE [Suspect]
     Indication: DRUG USE FOR UNKNOWN INDICATION
     Route: 042
  3. METHOTREXATE [Suspect]
     Indication: POLYARTHRITIS
     Route: 058
  4. DIAZEPAM [Concomitant]
     Route: 048
  5. LEVETIRACETAM [Concomitant]
     Route: 048
  6. METHYLPREDNISOLONE [Concomitant]
     Route: 042
  7. PREDNISOLONE [Concomitant]
     Route: 048
  8. PREDNISOLONE [Concomitant]
     Route: 048

REACTIONS (2)
  - CONVULSION [None]
  - GRAND MAL CONVULSION [None]
